FAERS Safety Report 11586900 (Version 9)
Quarter: 2018Q1

REPORT INFORMATION
  Report Type: Spontaneous
  Country: US (occurrence: US)
  Receive Date: 20151001
  Receipt Date: 20180202
  Transmission Date: 20180508
  Serious: Yes (Death, Hospitalization)
  Sender: FDA-Public Use
  Company Number: US-PFIZER INC-2015315767

PATIENT
  Age: 69 Year
  Sex: Female
  Weight: 64 kg

DRUGS (3)
  1. SANDOSTATIN [Concomitant]
     Active Substance: OCTREOTIDE ACETATE
     Dosage: UNK, MONTHLY
  2. SUTENT [Suspect]
     Active Substance: SUNITINIB MALATE
     Indication: PANCREATIC NEUROENDOCRINE TUMOUR METASTATIC
     Dosage: 37.5 MG, ONCE DAILY
     Route: 048
     Dates: start: 20150820
  3. SUTENT [Suspect]
     Active Substance: SUNITINIB MALATE
     Indication: CARCINOID TUMOUR
     Dosage: 37.5 MG, ONCE DAILY
     Route: 048
     Dates: start: 20170105, end: 20171126

REACTIONS (13)
  - Death [Fatal]
  - Tooth disorder [Unknown]
  - Alanine aminotransferase increased [Unknown]
  - Fatigue [Recovering/Resolving]
  - Neoplasm progression [Unknown]
  - Hypoglycaemia [Unknown]
  - Dry skin [Unknown]
  - Blood glucose fluctuation [Unknown]
  - Vomiting [Unknown]
  - Nausea [Unknown]
  - Pneumatosis intestinalis [Unknown]
  - Aspartate aminotransferase increased [Unknown]
  - Alopecia [Recovering/Resolving]

NARRATIVE: CASE EVENT DATE: 20150918
